FAERS Safety Report 13704656 (Version 2)
Quarter: 2017Q3

REPORT INFORMATION
  Report Type: Spontaneous
  Country: KR (occurrence: KR)
  Receive Date: 20170630
  Receipt Date: 20170717
  Transmission Date: 20171127
  Serious: Yes (Hospitalization, Other)
  Sender: FDA-Public Use
  Company Number: KR-SUN PHARMACEUTICAL INDUSTRIES LTD-2017RR-143288

PATIENT
  Age: 28 Year
  Sex: Male

DRUGS (10)
  1. LORAZEPAM. [Concomitant]
     Active Substance: LORAZEPAM
     Dosage: DECRESED TO 1 MG/DAY
     Route: 065
  2. BENZTROPINE [Concomitant]
     Active Substance: BENZTROPINE
     Dosage: INCREASED TO 4 MG/DAY
     Route: 065
  3. CLOZAPINE. [Suspect]
     Active Substance: CLOZAPINE
     Indication: DYSTONIA
     Dosage: BUILT UP TO 300 MG/DAY
  4. LORAZEPAM. [Concomitant]
     Active Substance: LORAZEPAM
     Indication: SCHIZOAFFECTIVE DISORDER
     Dosage: INCREASED TO 3MG/DAY
     Route: 065
  5. ARIPIPRAZOLE. [Suspect]
     Active Substance: ARIPIPRAZOLE
     Indication: SCHIZOAFFECTIVE DISORDER
     Dosage: INCREASED FROM 10 MG/DAY TO 20 MG/DAY 3 YEARS AGO
     Route: 065
  6. AMANTADINE. [Suspect]
     Active Substance: AMANTADINE HYDROCHLORIDE
     Indication: DYSTONIA
     Route: 065
  7. LORAZEPAM. [Concomitant]
     Active Substance: LORAZEPAM
     Dosage: INCREASED TO 4 MG/DAY
     Route: 065
  8. BENZTROPINE [Concomitant]
     Active Substance: BENZTROPINE
     Dosage: DECREASED TO 3 MG/DAY
     Route: 065
  9. OLANZAPINE. [Suspect]
     Active Substance: OLANZAPINE
     Indication: SCHIZOAFFECTIVE DISORDER
     Dosage: TITRATED UP TO 20 MG/DAY ON THE 7TH HOSPITAL DAY
     Route: 065
  10. BENZTROPINE [Concomitant]
     Active Substance: BENZTROPINE
     Indication: SCHIZOAFFECTIVE DISORDER
     Dosage: INCREASED TO 3MG/DAY
     Route: 065

REACTIONS (5)
  - Pneumonia aspiration [Recovered/Resolved]
  - Delirium [Recovered/Resolved]
  - Drug ineffective [Recovered/Resolved]
  - Dystonia [Recovered/Resolved]
  - Torticollis [Recovered/Resolved]
